FAERS Safety Report 6603242-X (Version None)
Quarter: 2010Q1

REPORT INFORMATION
  Report Type: 
  Country: None (occurrence: None)
  Receive Date: 20100226
  Receipt Date: 20100216
  Transmission Date: 20100710
  Serious: Yes (Hospitalization)
  Sender: FDA-Public Use
  Company Number: US-BAXTER-2009BH019339

PATIENT
  Age: 58 Year
  Sex: Female

DRUGS (21)
  1. GAMMAGARD LIQUID [Suspect]
     Indication: SELECTIVE POLYSACCHARIDE ANTIBODY DEFICIENCY
     Route: 042
     Dates: start: 20060322
  2. GAMMAGARD LIQUID [Suspect]
     Indication: OFF LABEL USE
     Route: 042
     Dates: start: 20060322
  3. GAMMAGARD LIQUID [Suspect]
     Route: 042
     Dates: start: 20091203, end: 20091203
  4. GAMMAGARD LIQUID [Suspect]
     Route: 042
     Dates: start: 20091203, end: 20091203
  5. GAMMAGARD LIQUID [Suspect]
     Route: 042
     Dates: start: 20091203, end: 20091203
  6. GAMMAGARD LIQUID [Suspect]
     Route: 042
     Dates: start: 20091203, end: 20091203
  7. GAMMAGARD LIQUID [Suspect]
     Route: 042
     Dates: start: 20091203, end: 20091203
  8. GAMMAGARD LIQUID [Suspect]
     Route: 042
     Dates: start: 20091203, end: 20091203
  9. IBUPROFEN [Concomitant]
     Route: 048
  10. PRILOSEC [Concomitant]
     Route: 048
  11. VISTARIL [Concomitant]
     Route: 048
  12. FOLIC ACID [Concomitant]
     Route: 048
  13. LEVOTHYROXINE [Concomitant]
     Route: 048
  14. REGLAN [Concomitant]
     Route: 048
  15. PROZAC [Concomitant]
     Route: 048
  16. EXCEDRIN (MIGRAINE) [Concomitant]
     Route: 048
  17. COLACE [Concomitant]
     Route: 048
  18. ROSUVASTATIN [Concomitant]
     Route: 048
  19. PROMETHAZINE [Concomitant]
     Route: 048
  20. ZETIA [Concomitant]
     Route: 048
  21. PLAVIX [Concomitant]
     Route: 048

REACTIONS (4)
  - BODY TEMPERATURE INCREASED [None]
  - RENAL FAILURE ACUTE [None]
  - SEPSIS [None]
  - URINARY TRACT INFECTION [None]
